FAERS Safety Report 6803223-7 (Version None)
Quarter: 2010Q2

REPORT INFORMATION
  Report Type: 
  Country: None (occurrence: None)
  Receive Date: 20100628
  Receipt Date: 20100617
  Transmission Date: 20101027
  Serious: Yes (Hospitalization)
  Sender: FDA-Public Use
  Company Number: B0661013A

PATIENT
  Sex: Female

DRUGS (14)
  1. ZOPHREN [Suspect]
     Route: 042
     Dates: start: 20100520, end: 20100521
  2. HERCEPTIN [Suspect]
     Indication: BREAST CANCER
     Route: 042
     Dates: start: 20100520, end: 20100520
  3. TAXOTERE [Suspect]
     Indication: BREAST CANCER
     Route: 042
     Dates: start: 20100521, end: 20100521
  4. PRETERAX [Suspect]
     Route: 048
     Dates: start: 20100518, end: 20100527
  5. SOLU-MEDROL [Suspect]
     Route: 042
     Dates: start: 20100520, end: 20100522
  6. CORTANCYL [Suspect]
     Route: 048
     Dates: start: 20100520, end: 20100522
  7. RANIPLEX [Suspect]
     Route: 048
     Dates: start: 20100520, end: 20100520
  8. POLARAMINE [Concomitant]
     Route: 065
     Dates: start: 20100520, end: 20100520
  9. INIPOMP [Concomitant]
     Route: 065
     Dates: start: 20100520, end: 20100527
  10. GYNOPEVARYL [Concomitant]
     Route: 065
     Dates: start: 20100521
  11. GRANOCYTE [Concomitant]
     Route: 065
     Dates: start: 20100524
  12. KENZEN [Concomitant]
     Route: 065
     Dates: start: 20100527
  13. LEVOTHYROXINE SODIUM [Concomitant]
     Route: 065
     Dates: start: 20040101
  14. VENTOLIN [Concomitant]
     Route: 065

REACTIONS (2)
  - ACUTE GENERALISED EXANTHEMATOUS PUSTULOSIS [None]
  - PRURITUS [None]
